FAERS Safety Report 5027080-7 (Version None)
Quarter: 2006Q2

REPORT INFORMATION
  Report Type: 
  Country: None (occurrence: None)
  Receive Date: 20060609
  Receipt Date: 20060531
  Transmission Date: 20061013
  Serious: Yes (Disabling)
  Sender: FDA-Public Use
  Company Number: HQWYE956505JUN06

PATIENT
  Age: 68 Year
  Sex: Male
  Weight: 70.82 kg

DRUGS (5)
  1. RAPAMUNE [Suspect]
     Indication: RENAL TRANSPLANT
     Dosage: 2  MG 1X PER 1 DAY, ORAL
     Route: 048
     Dates: start: 20011001, end: 20060501
  2. PREDNISONE TAB [Suspect]
     Indication: RENAL TRANSPLANT
     Dosage: 2.5 MG 1X PER 1 DAY, ORAL
     Route: 048
     Dates: start: 20000101
  3. ACTONEL [Concomitant]
  4. PLAVIX [Concomitant]
  5. LASIX [Concomitant]

REACTIONS (2)
  - MUSCLE RUPTURE [None]
  - ROTATOR CUFF REPAIR [None]
